FAERS Safety Report 14984263 (Version 1)
Quarter: 2018Q2

REPORT INFORMATION
  Report Type: Spontaneous
  Country: IT (occurrence: IT)
  Receive Date: 20180607
  Receipt Date: 20180607
  Transmission Date: 20180711
  Serious: No
  Sender: FDA-Public Use
  Company Number: IT-JAZZ-2018-IT-004529

PATIENT

DRUGS (2)
  1. CYCLOSPORIN [Concomitant]
     Active Substance: CYCLOSPORINE
  2. DEFITELIO [Suspect]
     Active Substance: DEFIBROTIDE SODIUM
     Indication: THROMBOTIC MICROANGIOPATHY

REACTIONS (1)
  - Drug ineffective for unapproved indication [Unknown]
